FAERS Safety Report 9756292 (Version 1)
Quarter: 2013Q4

REPORT INFORMATION
  Report Type: Spontaneous
  Country: US (occurrence: US)
  Receive Date: 20131213
  Receipt Date: 20131213
  Transmission Date: 20140711
  Serious: No
  Sender: FDA-Public Use
  Company Number: US-GLAXOSMITHKLINE-A1037643A

PATIENT
  Age: 75 Year
  Sex: Male

DRUGS (1)
  1. NICODERM CQ CLEAR 21MG [Suspect]
     Dates: start: 20130809, end: 20130814

REACTIONS (4)
  - Application site rash [Not Recovered/Not Resolved]
  - Application site pain [Not Recovered/Not Resolved]
  - Application site pain [Not Recovered/Not Resolved]
  - Rash [Not Recovered/Not Resolved]
